FAERS Safety Report 6464187-1 (Version None)
Quarter: 2009Q4

REPORT INFORMATION
  Report Type: 
  Country: None (occurrence: None)
  Receive Date: 20091201
  Receipt Date: 20091026
  Transmission Date: 20100525
  Serious: Yes (Disabling)
  Sender: FDA-Public Use
  Company Number: PHHY2009ES46326

PATIENT
  Sex: Female

DRUGS (3)
  1. EXTAVIA [Suspect]
     Indication: MULTIPLE SCLEROSIS
     Dosage: 1 MG
     Route: 058
     Dates: start: 20090928, end: 20091026
  2. ORFIDAL [Concomitant]
  3. IBUPROFEN [Concomitant]

REACTIONS (8)
  - ABDOMINAL PAIN UPPER [None]
  - FEELING ABNORMAL [None]
  - HEADACHE [None]
  - HYPERAESTHESIA [None]
  - INSOMNIA [None]
  - MENTAL DISORDER [None]
  - NERVOUSNESS [None]
  - NIGHTMARE [None]
